FAERS Safety Report 5959233-5 (Version None)
Quarter: 2008Q4

REPORT INFORMATION
  Report Type: 
  Country: None (occurrence: None)
  Receive Date: 20081120
  Receipt Date: 20080919
  Transmission Date: 20090506
  Serious: No
  Sender: FDA-Public Use
  Company Number: A0748390A

PATIENT
  Age: 54 Year
  Sex: Female

DRUGS (11)
  1. WELLBUTRIN SR [Suspect]
     Indication: DEPRESSION
     Dosage: 200MG TWICE PER DAY
     Route: 048
     Dates: start: 20080804
  2. SYNTHROID [Concomitant]
  3. CYTOMEL [Concomitant]
  4. AMBIEN [Concomitant]
  5. MULTI-VITAMINS [Concomitant]
  6. CLARITIN-D [Concomitant]
  7. FISH OIL [Concomitant]
  8. MAGNESIUM SULFATE [Concomitant]
  9. CALCIUM [Concomitant]
  10. UNKNOWN DRUG [Concomitant]
  11. RESTASIS [Concomitant]

REACTIONS (2)
  - AFFECTIVE DISORDER [None]
  - PRODUCT QUALITY ISSUE [None]
